FAERS Safety Report 25750376 (Version 1)
Quarter: 2025Q3

REPORT INFORMATION
  Report Type: Spontaneous
  Country: EU (occurrence: EU)
  Receive Date: 20250902
  Receipt Date: 20250902
  Transmission Date: 20251020
  Serious: Yes (Hospitalization)
  Sender: TEVA
  Company Number: None

PATIENT
  Age: 61 Year
  Sex: Female
  Weight: 60 kg

DRUGS (7)
  1. AMOXICILLIN [Suspect]
     Active Substance: AMOXICILLIN
     Indication: Erysipelas
     Route: 065
     Dates: start: 20250719, end: 20250726
  2. FEMARA [Concomitant]
     Active Substance: LETROZOLE
     Indication: Uterine cancer
     Route: 065
  3. RUCAPARIB [Concomitant]
     Active Substance: RUCAPARIB
     Indication: Uterine cancer
     Dosage: RUCAPARIB (CAMSYLATE DE)
     Route: 065
     Dates: start: 202401
  4. ASPIRIN [Concomitant]
     Active Substance: ASPIRIN
     Indication: Product used for unknown indication
     Route: 065
  5. CEFTRIAXONE SODIUM [Concomitant]
     Active Substance: CEFTRIAXONE SODIUM
     Indication: Sepsis
     Route: 042
     Dates: start: 20250719, end: 20250722
  6. VALACYCLOVIR HYDROCHLORIDE [Concomitant]
     Active Substance: VALACYCLOVIR HYDROCHLORIDE
     Indication: Aphthous ulcer
     Route: 065
     Dates: start: 20250724, end: 20250803
  7. TAHOR [Concomitant]
     Active Substance: ATORVASTATIN CALCIUM
     Indication: Product used for unknown indication
     Route: 065

REACTIONS (1)
  - Neutropenia [Recovered/Resolved]

NARRATIVE: CASE EVENT DATE: 20250725
